FAERS Safety Report 19318723 (Version 2)
Quarter: 2021Q3

REPORT INFORMATION
  Report Type: Report from Study
  Country: DE (occurrence: DE)
  Receive Date: 20210527
  Receipt Date: 20210903
  Transmission Date: 20211014
  Serious: Yes (Hospitalization)
  Sender: FDA-Public Use
  Company Number: DE-PFIZER INC-2021026961

PATIENT
  Age: 50 Year
  Sex: Female

DRUGS (7)
  1. EMSELEX [DARIFENACIN] [Concomitant]
     Dosage: 7.5 MG
     Dates: start: 201707
  2. RITUXIMAB. [Suspect]
     Active Substance: RITUXIMAB
     Dosage: UNK
     Route: 042
     Dates: start: 2018
  3. COMIRNATY [Suspect]
     Active Substance: TOZINAMERAN
     Indication: COVID-19 IMMUNISATION
     Dosage: DOSE 2, SINGLE
     Dates: start: 20210621, end: 20210621
  4. EMSELEX [DARIFENACIN] [Concomitant]
     Dosage: 15 MG
  5. RITUXIMAB. [Suspect]
     Active Substance: RITUXIMAB
     Dosage: 600 MG (FREQ:6 MOTHS)
     Route: 042
     Dates: start: 20201217
  6. RITUXIMAB. [Suspect]
     Active Substance: RITUXIMAB
     Indication: SECONDARY PROGRESSIVE MULTIPLE SCLEROSIS
     Dosage: UNK
     Route: 042
     Dates: start: 201707
  7. RITUXIMAB. [Suspect]
     Active Substance: RITUXIMAB
     Dosage: 600 MG EVERY 6 MONTHS
     Route: 042
     Dates: start: 202006

REACTIONS (11)
  - Multiple sclerosis relapse [Recovering/Resolving]
  - Pelvic fracture [Unknown]
  - Micturition urgency [Recovered/Resolved]
  - Joint range of motion decreased [Not Recovered/Not Resolved]
  - Off label use [Unknown]
  - Pain [Not Recovered/Not Resolved]
  - Fatigue [Not Recovered/Not Resolved]
  - Fractured coccyx [Unknown]
  - Fall [Unknown]
  - Fatigue [Recovered/Resolved]
  - Asthenia [Recovered/Resolved]

NARRATIVE: CASE EVENT DATE: 2018
